FAERS Safety Report 6218245-7 (Version None)
Quarter: 2009Q2

REPORT INFORMATION
  Report Type: 
  Country: None (occurrence: None)
  Receive Date: 20090604
  Receipt Date: 20090604
  Transmission Date: 20091009
  Serious: No
  Sender: FDA-Public Use
  Company Number: None

PATIENT
  Age: 38 Year
  Sex: Female
  Weight: 74.8435 kg

DRUGS (1)
  1. HUMIRA [Suspect]
     Indication: CROHN'S DISEASE
     Dosage: BIWEEKLY OTHER
     Route: 050
     Dates: start: 20090303, end: 20090429

REACTIONS (3)
  - FATIGUE [None]
  - HYPOAESTHESIA [None]
  - PARAESTHESIA [None]
